FAERS Safety Report 8148910 (Version 3)
Quarter: 2013Q3

REPORT INFORMATION
  Report Type: Spontaneous
  Country: US (occurrence: US)
  Receive Date: 20110922
  Receipt Date: 20130712
  Transmission Date: 20140515
  Serious: No
  Sender: FDA-Public Use
  Company Number: US-ASTRAZENECA-2010SE58893

PATIENT
  Age: 51 Year
  Sex: Female

DRUGS (13)
  1. SEROQUEL [Suspect]
     Indication: MAJOR DEPRESSION
     Route: 048
     Dates: start: 2009
  2. SEROQUEL [Suspect]
     Indication: SLEEP DISORDER
     Route: 048
     Dates: start: 2009
  3. SEROQUEL [Suspect]
     Indication: DEPRESSION
     Route: 048
     Dates: start: 2009
  4. SEROQUEL [Suspect]
     Indication: MAJOR DEPRESSION
     Route: 048
  5. SEROQUEL [Suspect]
     Indication: SLEEP DISORDER
     Route: 048
  6. SEROQUEL [Suspect]
     Indication: DEPRESSION
     Route: 048
  7. SEROQUEL [Suspect]
     Indication: MAJOR DEPRESSION
     Route: 048
  8. SEROQUEL [Suspect]
     Indication: SLEEP DISORDER
     Route: 048
  9. SEROQUEL [Suspect]
     Indication: DEPRESSION
     Route: 048
  10. ATENOLOL [Suspect]
     Indication: BLOOD PRESSURE ABNORMAL
     Route: 065
     Dates: start: 1998
  11. WELLBURTIN [Concomitant]
  12. WELLBURTIN [Concomitant]
     Route: 065
  13. AMLODIPINE [Concomitant]
     Indication: BLOOD PRESSURE ABNORMAL
     Route: 065
     Dates: start: 1999

REACTIONS (7)
  - Malaise [Unknown]
  - Initial insomnia [Unknown]
  - Memory impairment [Not Recovered/Not Resolved]
  - Headache [Unknown]
  - Drug dose omission [Unknown]
  - Off label use [Unknown]
  - Intentional drug misuse [Unknown]
